FAERS Safety Report 8166542-0 (Version None)
Quarter: 2012Q1

REPORT INFORMATION
  Report Type: 
  Country: None (occurrence: None)
  Receive Date: 20120227
  Receipt Date: 20110415
  Transmission Date: 20120608
  Serious: Yes (Other)
  Sender: FDA-Public Use
  Company Number: US-BRISTOL-MYERS SQUIBB COMPANY-15678691

PATIENT
  Age: 80 Year
  Sex: Male

DRUGS (3)
  1. CARBOPLATIN [Suspect]
     Indication: EAR NEOPLASM
  2. ERBITUX [Suspect]
     Indication: EAR NEOPLASM
  3. TAXOL [Suspect]
     Indication: EAR NEOPLASM

REACTIONS (1)
  - GASTROINTESTINAL HAEMORRHAGE [None]
